FAERS Safety Report 6303355-6 (Version None)
Quarter: 2009Q3

REPORT INFORMATION
  Report Type: 
  Country: None (occurrence: None)
  Receive Date: 20090810
  Receipt Date: 20090106
  Transmission Date: 20100115
  Serious: No
  Sender: FDA-Public Use
  Company Number: US-TYCO HEALTHCARE/MALLINCKRODT-T200900016

PATIENT
  Sex: Male
  Weight: 113.38 kg

DRUGS (3)
  1. PAMELOR [Suspect]
     Indication: DEPRESSION
     Dosage: UNK
     Route: 048
  2. SYNTHROID [Concomitant]
     Indication: HYPOTHYROIDISM
     Dosage: 100 UG, QD
     Route: 048
  3. ABILIFY [Concomitant]

REACTIONS (4)
  - AGGRESSION [None]
  - ANTISOCIAL BEHAVIOUR [None]
  - IRRITABILITY [None]
  - RESTLESSNESS [None]
